FAERS Safety Report 13981950 (Version 1)
Quarter: 2017Q3

REPORT INFORMATION
  Report Type: Spontaneous
  Country: US (occurrence: None)
  Receive Date: 20170915
  Receipt Date: 20170915
  Transmission Date: 20171128
  Serious: Yes (Hospitalization)
  Sender: FDA-Public Use
  Company Number: None

PATIENT
  Age: 56 Year
  Sex: Female

DRUGS (11)
  1. CETIRIZINE [Concomitant]
     Active Substance: CETIRIZINE HYDROCHLORIDE
  2. PRENATAL TABLET [Concomitant]
     Active Substance: VITAMINS
  3. OPSUMIT [Concomitant]
     Active Substance: MACITENTAN
  4. WARFARIN [Concomitant]
     Active Substance: WARFARIN
  5. TYVASO [Concomitant]
     Active Substance: TREPROSTINIL
  6. MAGNESIUM [Concomitant]
     Active Substance: MAGNESIUM
  7. FUROSEMIDE. [Concomitant]
     Active Substance: FUROSEMIDE
  8. MONTELUKAST [Concomitant]
     Active Substance: MONTELUKAST SODIUM
  9. ADCIRCA [Suspect]
     Active Substance: TADALAFIL
     Indication: CARDIAC DISORDER
     Route: 048
     Dates: start: 20170321
  10. BREO ELLIPTA [Concomitant]
     Active Substance: FLUTICASONE FUROATE\VILANTEROL TRIFENATATE
  11. METOLAZONE. [Concomitant]
     Active Substance: METOLAZONE

REACTIONS (2)
  - Drug dose omission [None]
  - Hypotension [None]

NARRATIVE: CASE EVENT DATE: 20170914
